FAERS Safety Report 10466328 (Version 1)
Quarter: 2014Q3

REPORT INFORMATION
  Report Type: Spontaneous
  Country: CA (occurrence: CA)
  Receive Date: 20140922
  Receipt Date: 20140922
  Transmission Date: 20150326
  Serious: Yes (Other)
  Sender: FDA-Public Use
  Company Number: CA-TEVA-509962USA

PATIENT
  Sex: Female
  Weight: 90.8 kg

DRUGS (1)
  1. LOSARTAN [Suspect]
     Active Substance: LOSARTAN
     Indication: PRODUCT USED FOR UNKNOWN INDICATION
     Route: 048

REACTIONS (6)
  - Choking [Unknown]
  - Blood pressure increased [Unknown]
  - Blood pressure inadequately controlled [Unknown]
  - Dysphagia [Unknown]
  - Drug ineffective [Unknown]
  - Product size issue [Unknown]
